FAERS Safety Report 6108971-2 (Version None)
Quarter: 2009Q1

REPORT INFORMATION
  Report Type: 
  Country: None (occurrence: None)
  Receive Date: 20090310
  Receipt Date: 20090309
  Transmission Date: 20090719
  Serious: Yes (Life-Threatening)
  Sender: FDA-Public Use
  Company Number: DE-WYE-G03277309

PATIENT
  Sex: Male
  Weight: 87 kg

DRUGS (4)
  1. TAZOBAC EF [Suspect]
     Indication: PNEUMONIA
     Route: 042
     Dates: start: 20090226, end: 20090228
  2. HYDROCHLOROTHIAZIDE [Concomitant]
     Indication: CARDIAC FAILURE
     Dosage: UNKNOWN
     Route: 048
     Dates: start: 20090222, end: 20090228
  3. AMIODARONE HCL [Concomitant]
     Dosage: UNKNOWN
     Route: 048
     Dates: start: 20090219, end: 20090220
  4. HEPARIN [Concomitant]
     Indication: MYOCARDIAL INFARCTION
     Dosage: UNKNOWN
     Route: 042
     Dates: start: 20090218, end: 20090228

REACTIONS (1)
  - HAEMOLYTIC ANAEMIA [None]
